FAERS Safety Report 19835994 (Version 1)
Quarter: 2021Q3

REPORT INFORMATION
  Report Type: Spontaneous
  Country: US (occurrence: US)
  Receive Date: 20210916
  Receipt Date: 20210916
  Transmission Date: 20211014
  Serious: No
  Sender: FDA-Public Use
  Company Number: US-B.I. PHARMACEUTICALS,INC./RIDGEFIELD-2021-BI-127350

PATIENT
  Sex: Female

DRUGS (1)
  1. COMBIVENT [Suspect]
     Active Substance: ALBUTEROL SULFATE\IPRATROPIUM BROMIDE
     Indication: ASTHMA
     Dosage: 1 PUFF EVERY 6 HOURS AS NEEDED FOR. INHALATION SPRAY.

REACTIONS (4)
  - Off label use [Unknown]
  - Wheezing [Unknown]
  - Expired product administered [Unknown]
  - Asthma [Unknown]

NARRATIVE: CASE EVENT DATE: 2021
